FAERS Safety Report 7412418-3 (Version None)
Quarter: 2011Q2

REPORT INFORMATION
  Report Type: 
  Country: None (occurrence: None)
  Receive Date: 20110408
  Receipt Date: 20110408
  Transmission Date: 20111010
  Serious: Yes (Disabling, Other)
  Sender: FDA-Public Use
  Company Number: None

PATIENT
  Age: 27 Year
  Sex: Female
  Weight: 61.2356 kg

DRUGS (5)
  1. VITAMIN D [Concomitant]
  2. FEOSOL -CARBONYL IRON- [Concomitant]
  3. CYMBALTA [Concomitant]
  4. LATUDA [Suspect]
     Indication: AFFECTIVE DISORDER
     Dosage: ONE NIGHTLY PO
     Route: 048
     Dates: start: 20110405, end: 20110405
  5. ASCORBIC ACID [Concomitant]

REACTIONS (5)
  - RASH ERYTHEMATOUS [None]
  - RASH PRURITIC [None]
  - RASH PAPULAR [None]
  - PAIN [None]
  - RASH [None]
